FAERS Safety Report 11350031 (Version 1)
Quarter: 2015Q3

REPORT INFORMATION
  Report Type: Spontaneous
  Country: US (occurrence: None)
  Receive Date: 20150806
  Receipt Date: 20150806
  Transmission Date: 20151125
  Serious: No
  Sender: FDA-Public Use
  Company Number: US-2015CRT000250

PATIENT
  Age: 29 Year
  Sex: Female
  Weight: 78 kg

DRUGS (10)
  1. TRAMADOL. [Concomitant]
     Active Substance: TRAMADOL
  2. ZARAH (DROSPIRENONE, ETHINYLESTRADIOL) [Concomitant]
  3. CLONAZEPAM. [Concomitant]
     Active Substance: CLONAZEPAM
  4. DIAZEPAM. [Concomitant]
     Active Substance: DIAZEPAM
  5. NAPROXEN. [Concomitant]
     Active Substance: NAPROXEN
  6. CITALOPRAM [Concomitant]
     Active Substance: CITALOPRAM HYDROBROMIDE
  7. CYCLOBENZAPRINE [Concomitant]
     Active Substance: CYCLOBENZAPRINE
  8. TYLENOL W/CODEINE NO. 3 (CODEINE PHOSPHATE, PARACETAMOL) [Concomitant]
  9. KORLYM [Suspect]
     Active Substance: MIFEPRISTONE
     Indication: PITUITARY-DEPENDENT CUSHING^S SYNDROME
     Route: 048
     Dates: start: 20140815, end: 20150105
  10. SPIRONOLACTONE. [Concomitant]
     Active Substance: SPIRONOLACTONE

REACTIONS (4)
  - Motion sickness [None]
  - Circadian rhythm sleep disorder [None]
  - Dizziness [None]
  - Endometrial hyperplasia [None]
